APPROVED DRUG PRODUCT: EVOMELA
Active Ingredient: MELPHALAN HYDROCHLORIDE
Strength: EQ 50MG BASE/VIAL
Dosage Form/Route: POWDER;INTRAVENOUS
Application: N207155 | Product #001
Applicant: ACROTECH BIOPHARMA INC
Approved: Mar 10, 2016 | RLD: Yes | RS: Yes | Type: RX

PATENTS:
Patent 10940128 | Expires: Jun 14, 2030
Patent 11020363 | Expires: May 28, 2030
Patent 10864183 | Expires: May 28, 2030
Patent 10040872 | Expires: Jan 30, 2034
Patent 9200088 | Expires: Mar 13, 2029
Patent 9493582 | Expires: Feb 27, 2033
Patent 8410077 | Expires: Mar 13, 2029